FAERS Safety Report 6427338-0 (Version None)
Quarter: 2009Q4

REPORT INFORMATION
  Report Type: 
  Country: None (occurrence: None)
  Receive Date: 20091104
  Receipt Date: 20091028
  Transmission Date: 20100525
  Serious: Yes (Hospitalization, Other)
  Sender: FDA-Public Use
  Company Number: CH-TEVA-213844ISR

PATIENT
  Sex: Male
  Weight: 81 kg

DRUGS (9)
  1. VINCRISTINE [Suspect]
     Route: 042
  2. PREDNISOLONE [Suspect]
     Route: 048
  3. PEGFILGRASTIM [Suspect]
     Indication: CHEMOTHERAPY
     Route: 058
     Dates: start: 20090508
  4. RITUXIMAB [Suspect]
     Route: 042
     Dates: start: 20090423
  5. CYCLOPHOSPHAMIDE [Suspect]
     Route: 042
  6. DOXORUBICIN HCL [Suspect]
     Route: 042
  7. CYTARABINE [Concomitant]
  8. METHOTREXATE [Concomitant]
  9. DEXAMETHASONE [Concomitant]

REACTIONS (2)
  - GUILLAIN-BARRE SYNDROME [None]
  - LEUKOCYTOSIS [None]
